FAERS Safety Report 5043180-X (Version None)
Quarter: 2006Q2

REPORT INFORMATION
  Report Type: 
  Country: None (occurrence: None)
  Receive Date: 20060628
  Receipt Date: 20060615
  Transmission Date: 20061013
  Serious: Yes (Hospitalization)
  Sender: FDA-Public Use
  Company Number: 007729

PATIENT
  Age: 39 Year
  Sex: Female
  Weight: 86.2 kg

DRUGS (4)
  1. WARFARIN SODIUM [Suspect]
     Indication: ANTICOAGULANT THERAPY
     Dosage: 1 TABLET, QOD, ORAL; SEE IMAGE
     Route: 048
     Dates: start: 20051001, end: 20060323
  2. WARFARIN SODIUM [Suspect]
     Indication: ANTICOAGULANT THERAPY
     Dosage: 1 TABLET, QOD, ORAL; SEE IMAGE
     Route: 048
     Dates: start: 20051001, end: 20060323
  3. ORTHO-NOVUM (NORETHISTERONE) [Concomitant]
  4. TOPROL-XL [Concomitant]

REACTIONS (8)
  - ASTHENIA [None]
  - CONFUSIONAL STATE [None]
  - DIZZINESS [None]
  - DRUG INEFFECTIVE [None]
  - FALL [None]
  - INTERNATIONAL NORMALISED RATIO DECREASED [None]
  - TRANSIENT ISCHAEMIC ATTACK [None]
  - VISUAL ACUITY REDUCED [None]
